FAERS Safety Report 9824632 (Version 2)
Quarter: 2014Q1

REPORT INFORMATION
  Report Type: Spontaneous
  Country: US (occurrence: US)
  Receive Date: 20140117
  Receipt Date: 20140117
  Transmission Date: 20141002
  Serious: Yes (Hospitalization)
  Sender: FDA-Public Use
  Company Number: US-GILEAD-2011-0039061

PATIENT
  Sex: Female

DRUGS (3)
  1. LETAIRIS [Suspect]
     Indication: PRODUCT USED FOR UNKNOWN INDICATION
     Route: 048
     Dates: start: 20090910
  2. LETAIRIS [Suspect]
     Route: 048
     Dates: start: 20110324, end: 20110504
  3. REMODULIN [Concomitant]

REACTIONS (1)
  - Dyspnoea [Unknown]
